FAERS Safety Report 6899070-0 (Version None)
Quarter: 2010Q3

REPORT INFORMATION
  Report Type: 
  Country: None (occurrence: None)
  Receive Date: 20100802
  Receipt Date: 20071231
  Transmission Date: 20110219
  Serious: No
  Sender: FDA-Public Use
  Company Number: US-PFIZER INC-2008000522

PATIENT
  Age: 45 Year
  Sex: Female

DRUGS (2)
  1. LYRICA [Suspect]
     Indication: VIITH NERVE PARALYSIS
  2. LYRICA [Suspect]
     Indication: NEURALGIA

REACTIONS (1)
  - EPISTAXIS [None]
